FAERS Safety Report 11419683 (Version 1)
Quarter: 2015Q3

REPORT INFORMATION
  Report Type: Spontaneous
  Country: FR (occurrence: FR)
  Receive Date: 20150826
  Receipt Date: 20150826
  Transmission Date: 20151125
  Serious: Yes (Hospitalization)
  Sender: FDA-Public Use
  Company Number: FR-SA-2015SA127470

PATIENT
  Age: 84 Year
  Sex: Male

DRUGS (9)
  1. PRIVIGEN [Concomitant]
     Active Substance: HUMAN IMMUNOGLOBULIN G
     Dosage: FREQUENCY: EVERY 9 WEEKS
  2. LOVENOX [Suspect]
     Active Substance: ENOXAPARIN SODIUM
     Indication: INTERVERTEBRAL DISCITIS
     Route: 058
     Dates: start: 20150620, end: 20150705
  3. PREVISCAN [Concomitant]
     Active Substance: FLUINDIONE
     Dates: end: 20150620
  4. SKENAN [Concomitant]
     Active Substance: MORPHINE SULFATE
  5. VANCOMYCIN [Suspect]
     Active Substance: VANCOMYCIN
     Indication: INTERVERTEBRAL DISCITIS
     Route: 042
     Dates: start: 20150622, end: 20150704
  6. ORBENINE [Concomitant]
     Active Substance: CLOXACILLIN SODIUM
     Dates: start: 20150620, end: 20150622
  7. GENTAMICIN. [Suspect]
     Active Substance: GENTAMICIN
     Indication: INTERVERTEBRAL DISCITIS
     Route: 042
     Dates: start: 20150620, end: 20150704
  8. BISOPROLOL [Concomitant]
     Active Substance: BISOPROLOL
  9. CRESTOR [Concomitant]
     Active Substance: ROSUVASTATIN CALCIUM

REACTIONS (1)
  - Drug reaction with eosinophilia and systemic symptoms [Recovered/Resolved]

NARRATIVE: CASE EVENT DATE: 20150704
